FAERS Safety Report 22951173 (Version 4)
Quarter: 2023Q4

REPORT INFORMATION
  Report Type: Spontaneous
  Country: US (occurrence: US)
  Receive Date: 20230917
  Receipt Date: 20231227
  Transmission Date: 20240109
  Serious: No
  Sender: FDA-Public Use
  Company Number: US-GE HEALTHCARE-2023CSU007773

PATIENT
  Sex: Female

DRUGS (5)
  1. CERIANNA [Suspect]
     Active Substance: FLUOROESTRADIOL F-18
     Indication: Positron emission tomogram
     Dosage: 222 MBQ, SINGLE
     Route: 065
     Dates: start: 20230217, end: 20230217
  2. CERIANNA [Suspect]
     Active Substance: FLUOROESTRADIOL F-18
     Indication: Invasive lobular breast carcinoma
  3. LORAZEPAM [Concomitant]
     Active Substance: LORAZEPAM
     Dosage: UNK
  4. FULVESTRANT [Concomitant]
     Active Substance: FULVESTRANT
     Dosage: UNK
  5. PALBOCICLIB [Concomitant]
     Active Substance: PALBOCICLIB
     Dosage: UNK

REACTIONS (1)
  - False negative investigation result [Recovered/Resolved]

NARRATIVE: CASE EVENT DATE: 20230217
